FAERS Safety Report 21960543 (Version 1)
Quarter: 2023Q1

REPORT INFORMATION
  Report Type: Spontaneous
  Country: FR (occurrence: FR)
  Receive Date: 20230207
  Receipt Date: 20230207
  Transmission Date: 20230418
  Serious: Yes (Death, Other)
  Sender: FDA-Public Use
  Company Number: FR-AFSSAPS-PP2023000165

PATIENT
  Age: 49 Year
  Sex: Female

DRUGS (4)
  1. ESCITALOPRAM [Interacting]
     Active Substance: ESCITALOPRAM OXALATE
     Indication: Depression
     Dosage: 20 MILLIGRAM, ONCE A DAY (20MG*1X/J)
     Route: 048
     Dates: start: 20220121, end: 20220220
  2. LANSOPRAZOLE [Interacting]
     Active Substance: LANSOPRAZOLE
     Indication: Prophylaxis against gastrointestinal ulcer
     Dosage: 30 MILLIGRAM, ONCE A DAY (30MG*1X/J)
     Route: 048
     Dates: start: 20220208
  3. POSACONAZOLE [Interacting]
     Active Substance: POSACONAZOLE
     Indication: Systemic mycosis
     Dosage: 300 MILLIGRAM, ONCE A DAY (100MG*3X/J)
     Route: 048
     Dates: start: 20220215
  4. ATARAX [Interacting]
     Active Substance: HYDROXYZINE HYDROCHLORIDE
     Indication: Anxiety
     Dosage: 75 MILLIGRAM, ONCE A DAY (25MG*3X/J)
     Route: 048
     Dates: start: 20220124, end: 20220220

REACTIONS (1)
  - Death [Fatal]

NARRATIVE: CASE EVENT DATE: 20220220
